FAERS Safety Report 10220799 (Version 1)
Quarter: 2014Q2

REPORT INFORMATION
  Report Type: Spontaneous
  Country: US (occurrence: None)
  Receive Date: 20140605
  Receipt Date: 20140605
  Transmission Date: 20141212
  Serious: Yes (Hospitalization)
  Sender: FDA-Public Use
  Company Number: None

PATIENT
  Age: 66 Year
  Sex: Male
  Weight: 118.6 kg

DRUGS (1)
  1. FLUNISOLIDE [Suspect]
     Indication: HYPERSENSITIVITY
     Dates: start: 20120417, end: 20130402

REACTIONS (1)
  - Tachycardia [None]
